FAERS Safety Report 19150026 (Version 1)
Quarter: 2021Q2

REPORT INFORMATION
  Report Type: Spontaneous
  Country: AT (occurrence: AT)
  Receive Date: 20210417
  Receipt Date: 20210417
  Transmission Date: 20210717
  Serious: Yes (Other)
  Sender: FDA-Public Use
  Company Number: NVSC2021AT077209

PATIENT
  Age: 57 Year
  Sex: Male

DRUGS (17)
  1. VENLAFAXINE [Suspect]
     Active Substance: VENLAFAXINE HYDROCHLORIDE
     Indication: ACUTE PSYCHOSIS
     Dosage: 37.5 MG
     Route: 065
     Dates: start: 20201106, end: 20201107
  2. LAMOTRIGIN [Suspect]
     Active Substance: LAMOTRIGINE
     Indication: ACUTE PSYCHOSIS
     Dosage: 25 MG
     Route: 065
     Dates: start: 20201105, end: 20201113
  3. LAMOTRIGIN [Suspect]
     Active Substance: LAMOTRIGINE
     Dosage: 150MG
     Route: 065
     Dates: start: 20201210
  4. RISPERDAL [Suspect]
     Active Substance: RISPERIDONE
     Indication: ACUTE PSYCHOSIS
     Dosage: 2.5 MG
     Route: 065
     Dates: start: 20201106, end: 20201106
  5. VENLAFAXINE [Suspect]
     Active Substance: VENLAFAXINE HYDROCHLORIDE
     Dosage: 75 MG
     Route: 065
     Dates: start: 20201108, end: 20201112
  6. TEMESTA [LORAZEPAM] [Suspect]
     Active Substance: LORAZEPAM
     Dosage: 2 MG
     Route: 065
     Dates: start: 20201202, end: 20201203
  7. LAMOTRIGIN [Suspect]
     Active Substance: LAMOTRIGINE
     Dosage: 50 MG
     Route: 065
     Dates: start: 20201114, end: 20201124
  8. TEMESTA [LORAZEPAM] [Suspect]
     Active Substance: LORAZEPAM
     Indication: ACUTE PSYCHOSIS
     Dosage: 5 MG
     Route: 065
     Dates: start: 20201102, end: 20201103
  9. TEMESTA [LORAZEPAM] [Suspect]
     Active Substance: LORAZEPAM
     Dosage: 1.5 MG
     Route: 065
     Dates: start: 20201204
  10. RISPERDAL [Suspect]
     Active Substance: RISPERIDONE
     Dosage: 4 MG
     Route: 065
     Dates: start: 20201107, end: 20201112
  11. LAMOTRIGIN [Suspect]
     Active Substance: LAMOTRIGINE
     Dosage: 100 MG
     Route: 065
     Dates: start: 20201125, end: 20201209
  12. TEMESTA [LORAZEPAM] [Suspect]
     Active Substance: LORAZEPAM
     Dosage: 2.5 MG
     Route: 065
     Dates: start: 20201104, end: 20201105
  13. TEMESTA [LORAZEPAM] [Suspect]
     Active Substance: LORAZEPAM
     Dosage: 1MG
     Route: 065
     Dates: start: 20201215
  14. TEMESTA [LORAZEPAM] [Suspect]
     Active Substance: LORAZEPAM
     Dosage: 2.5 MG
     Route: 065
     Dates: start: 20201112, end: 20201201
  15. MIRTAZAPINE. [Suspect]
     Active Substance: MIRTAZAPINE
     Indication: ACUTE PSYCHOSIS
     Dosage: 30 MG
     Route: 065
  16. TEMESTA [LORAZEPAM] [Suspect]
     Active Substance: LORAZEPAM
     Dosage: 1.25 MG
     Route: 065
     Dates: start: 20201106, end: 20201110
  17. TEMESTA [LORAZEPAM] [Suspect]
     Active Substance: LORAZEPAM
     Dosage: 1 MG
     Route: 065
     Dates: start: 20201111, end: 20201111

REACTIONS (1)
  - Extrasystoles [Recovered/Resolved]

NARRATIVE: CASE EVENT DATE: 20201112
